FAERS Safety Report 4446720-4 (Version None)
Quarter: 2004Q3

REPORT INFORMATION
  Report Type: 
  Country: None (occurrence: None)
  Receive Date: 20040910
  Receipt Date: 20040902
  Transmission Date: 20050211
  Serious: Yes (Life-Threatening)
  Sender: FDA-Public Use
  Company Number: 2004CG00911

PATIENT
  Age: 65 Year
  Sex: Female

DRUGS (6)
  1. MOPRAL [Suspect]
     Dosage: 20 MG DAILY PO
     Route: 048
     Dates: start: 20031214
  2. TAZOCILLINE [Suspect]
     Indication: PERITONITIS
     Dosage: 4 G QID IV
     Route: 042
     Dates: start: 20031205
  3. LEXOMIL [Concomitant]
  4. PROZAC [Concomitant]
  5. STILNOX [Concomitant]
  6. NICARDIPINE HCL [Concomitant]

REACTIONS (8)
  - CHOLESTASIS [None]
  - DRUG HYPERSENSITIVITY [None]
  - EOSINOPHILIA [None]
  - ESSENTIAL HYPERTENSION [None]
  - LEUKOCYTOCLASTIC VASCULITIS [None]
  - LYMPHADENOPATHY [None]
  - PYREXIA [None]
  - RASH MACULO-PAPULAR [None]
